FAERS Safety Report 18051473 (Version 1)
Quarter: 2020Q3

REPORT INFORMATION
  Report Type: Report from Study
  Country: US (occurrence: US)
  Receive Date: 20200721
  Receipt Date: 20200721
  Transmission Date: 20201103
  Serious: Yes (Hospitalization)
  Sender: FDA-Public Use
  Company Number: US-ACTELION-A-NJ2018-169609

PATIENT
  Sex: Female

DRUGS (3)
  1. OPSUMIT [Suspect]
     Active Substance: MACITENTAN
     Indication: PULMONARY ARTERIAL HYPERTENSION
     Dosage: 10 MG, QD
     Route: 048
     Dates: start: 20150315
  2. VALSARTAN. [Concomitant]
     Active Substance: VALSARTAN
  3. LOSARTAN. [Concomitant]
     Active Substance: LOSARTAN
     Dosage: UNK
     Dates: start: 201901

REACTIONS (12)
  - Blood pressure abnormal [Unknown]
  - Dehydration [Unknown]
  - Fall [Unknown]
  - Living in residential institution [Unknown]
  - Hypertension [Unknown]
  - Dyspnoea [Unknown]
  - Palpitations [Unknown]
  - Cardiac disorder [Unknown]
  - Fluid retention [Unknown]
  - Atrial fibrillation [Unknown]
  - Visual impairment [Unknown]
  - Localised infection [Unknown]
